FAERS Safety Report 21179149 (Version 1)
Quarter: 2022Q3

REPORT INFORMATION
  Report Type: Report from Study
  Country: US (occurrence: US)
  Receive Date: 20220805
  Receipt Date: 20220805
  Transmission Date: 20221026
  Serious: Yes (Other)
  Sender: FDA-Public Use
  Company Number: US-JAZZ-2022-US-015260

PATIENT
  Age: 50 Year
  Sex: Female

DRUGS (6)
  1. XYWAV [Suspect]
     Active Substance: CALCIUM OXYBATE\MAGNESIUM OXYBATE\POTASSIUM OXYBATE\SODIUM OXYBATE
     Indication: Narcolepsy
     Dosage: UNK
     Route: 048
  2. MAXALT-MLT [Concomitant]
     Active Substance: RIZATRIPTAN BENZOATE
     Dosage: 0010
     Dates: start: 20110401
  3. BOTOX [Concomitant]
     Active Substance: ONABOTULINUMTOXINA
     Dosage: UNK
     Dates: start: 20150921
  4. SYNTHROID [Concomitant]
     Active Substance: LEVOTHYROXINE SODIUM
     Dosage: UNK, QD
     Dates: start: 20151002
  5. BUTALB/ACET/CAFFEINE [Concomitant]
     Dosage: UNK
     Dates: start: 20170816
  6. AMBIEN [Concomitant]
     Active Substance: ZOLPIDEM TARTRATE
     Dosage: UNK
     Dates: start: 20220421

REACTIONS (6)
  - Endocrine ophthalmopathy [Unknown]
  - Keratomileusis [Recovered/Resolved]
  - Alopecia [Unknown]
  - Migraine [Unknown]
  - Restless legs syndrome [Unknown]
  - Drug hypersensitivity [Unknown]

NARRATIVE: CASE EVENT DATE: 20220201
